FAERS Safety Report 9032709 (Version 4)
Quarter: 2013Q2

REPORT INFORMATION
  Report Type: Spontaneous
  Country: US (occurrence: US)
  Receive Date: 20130128
  Receipt Date: 20130408
  Transmission Date: 20140414
  Serious: Yes (Hospitalization, Other)
  Sender: FDA-Public Use
  Company Number: US-BIOGENIDEC-2013BI007969

PATIENT
  Age: 53 Year
  Sex: Female

DRUGS (1)
  1. TYSABRI [Suspect]
     Indication: MULTIPLE SCLEROSIS
     Route: 042
     Dates: start: 20110616, end: 20121207

REACTIONS (14)
  - Gastrostomy [Unknown]
  - Liver sarcoidosis [Not Recovered/Not Resolved]
  - CREST syndrome [Not Recovered/Not Resolved]
  - Catheter site cellulitis [Recovered/Resolved]
  - Dysphagia [Not Recovered/Not Resolved]
  - Choking [Unknown]
  - Catheter site erosion [Recovered/Resolved]
  - Catheter site haemorrhage [Recovered/Resolved]
  - Feeding tube complication [Recovered/Resolved]
  - Cognitive disorder [Unknown]
  - Spinal disorder [Not Recovered/Not Resolved]
  - Spinal column injury [Not Recovered/Not Resolved]
  - Fall [Recovered/Resolved]
  - Muscle spasticity [Not Recovered/Not Resolved]
